FAERS Safety Report 4591561-0 (Version None)
Quarter: 2005Q1

REPORT INFORMATION
  Report Type: 
  Country: None (occurrence: None)
  Receive Date: 20050222
  Receipt Date: 20050207
  Transmission Date: 20050727
  Serious: Yes (Hospitalization, Disabling, Congenital Anomaly, Other)
  Sender: FDA-Public Use
  Company Number: 2005027575

PATIENT
  Sex: Female

DRUGS (9)
  1. BEXTRA [Suspect]
     Indication: OSTEOARTHRITIS
     Dosage: 20 MG (20 MG, 1 IN 1 D), ORAL
     Route: 048
     Dates: start: 20020911, end: 20041226
  2. LEVOTHYROXINE SODIUM [Concomitant]
  3. CITIRIZINE HYDROCHLORIDE (CITIRIZINE HYDROCHLORIDE) [Concomitant]
  4. CONJUGATED ESTROGENS [Concomitant]
  5. LANSOPRAZOLE [Concomitant]
  6. ASPIRIN [Concomitant]
  7. PAROXETINE HCL [Concomitant]
  8. ALENDRONATE SODIUM [Concomitant]
  9. METOPROLOL TARTRATE [Concomitant]

REACTIONS (3)
  - CEREBROVASCULAR ACCIDENT [None]
  - HEMIPLEGIA [None]
  - INFARCTION [None]
